FAERS Safety Report 4377120-3 (Version None)
Quarter: 2004Q2

REPORT INFORMATION
  Report Type: 
  Country: None (occurrence: None)
  Receive Date: 20040615
  Receipt Date: 20040603
  Transmission Date: 20050107
  Serious: Yes (Hospitalization)
  Sender: FDA-Public Use
  Company Number: US-BRISTOL-MYERS SQUIBB COMPANY-12604690

PATIENT
  Age: 81 Year
  Sex: Male
  Weight: 82 kg

DRUGS (15)
  1. CISPLATIN [Suspect]
     Indication: MESOTHELIOMA
     Route: 042
     Dates: start: 20020809, end: 20020809
  2. PEMETREXED DISODIUM [Suspect]
     Indication: MESOTHELIOMA
     Route: 042
     Dates: start: 20020809, end: 20020809
  3. FOLIC ACID [Concomitant]
     Dates: start: 20020710
  4. VITAMIN B-12 [Concomitant]
     Dates: start: 20020710
  5. PRILOSEC [Concomitant]
     Indication: GASTROOESOPHAGEAL REFLUX DISEASE
     Dates: start: 20011126
  6. OXYCODONE HCL + ACETAMINOPHEN [Concomitant]
     Indication: PAIN
     Dates: start: 20020526
  7. PAXIL [Concomitant]
     Indication: DEPRESSION
     Dates: start: 20020727
  8. NEURONTIN [Concomitant]
     Indication: NEURALGIA
     Dates: start: 20020730
  9. CELEBREX [Concomitant]
     Dates: start: 20020615, end: 20020815
  10. SENNTAB [Concomitant]
     Indication: CONSTIPATION
     Dates: start: 20020530
  11. MULTIVITAMIN [Concomitant]
     Indication: VITAMIN SUPPLEMENTATION
     Dates: start: 20011115
  12. MEGESTROL [Concomitant]
     Indication: INCREASED APPETITE
     Dates: start: 20020814
  13. XOPENEX [Concomitant]
     Route: 055
     Dates: start: 20020719
  14. ATROVENT [Concomitant]
     Route: 055
     Dates: start: 20020730
  15. PULMICORT [Concomitant]
     Route: 055
     Dates: start: 20020719

REACTIONS (3)
  - DEHYDRATION [None]
  - GASTROINTESTINAL PAIN [None]
  - ILEUS [None]
